FAERS Safety Report 8490618 (Version 3)
Quarter: 2012Q4

REPORT INFORMATION
  Report Type: 
  Country: US (occurrence: US)
  Receive Date: 20120403
  Receipt Date: 20120913
  Transmission Date: 20130627
  Serious: Yes (Hospitalization)
  Sender: FDA-Public Use
  Company Number: US-BAYER-2012-029780

PATIENT
  Age: 27 Year
  Sex: Female
  Weight: 58.96 kg

DRUGS (3)
  1. YASMIN [Suspect]
     Indication: ACNE
     Dosage: UNK
     Dates: start: 20040101, end: 20100226
  2. YASMIN [Suspect]
     Indication: CONTRACEPTION
  3. ASA [Concomitant]
     Dosage: UNK
     Dates: start: 20100226

REACTIONS (3)
  - Retinal artery occlusion [None]
  - Injury [None]
  - Pain [None]
